FAERS Safety Report 6243526-0 (Version None)
Quarter: 2009Q2

REPORT INFORMATION
  Report Type: 
  Country: None (occurrence: None)
  Receive Date: 20090624
  Receipt Date: 20090620
  Transmission Date: 20091009
  Serious: Yes (Death, Hospitalization, Other)
  Sender: FDA-Public Use
  Company Number: PHHY2009BR24765

PATIENT
  Sex: Male

DRUGS (10)
  1. EXELON [Suspect]
     Indication: MEMORY IMPAIRMENT
     Dosage: 1 DF, QD
     Route: 062
     Dates: start: 20080601
  2. CLOPIDOGREL BISULFATE [Concomitant]
     Dosage: ONCE/DAY
     Route: 048
     Dates: start: 20080601
  3. PROLOPA [Concomitant]
     Indication: DEMENTIA ALZHEIMER'S TYPE
     Dosage: THRICE/DAY
     Route: 048
     Dates: start: 20080601
  4. OMEPRAZOLE [Concomitant]
     Indication: GASTRIC DISORDER
     Dosage: 20 MG, QD, (ONCE IN FASTING)
     Route: 048
     Dates: start: 20080601
  5. MANTIDAN [Concomitant]
     Dosage: 100 MG, BID (AT BREAKFAST AND DINNER)
     Route: 048
     Dates: start: 20080601
  6. ENDOFOLIN [Concomitant]
     Indication: PLATELET COUNT DECREASED
     Dosage: ONCE/DAY
     Route: 048
     Dates: start: 20090331, end: 20090404
  7. GLIBENCLAMIDE [Concomitant]
     Indication: DIABETES MELLITUS
     Dosage: 1 DF, QD (IN THE MORNING)
     Route: 048
     Dates: start: 19980101, end: 20090201
  8. OXYBUTYNIN CHLORIDE [Concomitant]
     Indication: PROSTATOMEGALY
     Dosage: 1 DF, QHS
     Route: 048
     Dates: start: 20060101
  9. DAFLON (DIOSMIN/HESPERIDIN) [Concomitant]
     Dosage: 500 MG, UNK
  10. DOXAZOSIN MESILATE [Concomitant]
     Indication: PROSTATOMEGALY
     Dosage: 1 DF, QHS
     Dates: start: 20060101

REACTIONS (13)
  - CEREBRAL HAEMORRHAGE [None]
  - COMA [None]
  - DISORIENTATION [None]
  - FALL [None]
  - HYPOGLYCAEMIA [None]
  - LOSS OF CONSCIOUSNESS [None]
  - MULTI-ORGAN FAILURE [None]
  - PLATELET COUNT DECREASED [None]
  - PNEUMONIA [None]
  - PROSTATE CANCER [None]
  - SURGERY [None]
  - TRAUMATIC BRAIN INJURY [None]
  - VOMITING [None]
